FAERS Safety Report 9377211 (Version 2)
Quarter: 2013Q3

REPORT INFORMATION
  Report Type: Spontaneous
  Country: DE (occurrence: DE)
  Receive Date: 20130701
  Receipt Date: 20130816
  Transmission Date: 20140515
  Serious: Yes (Other)
  Sender: FDA-Public Use
  Company Number: DE-ASTELLAS-2013EU005475

PATIENT
  Sex: Male

DRUGS (1)
  1. VESIKUR [Suspect]
     Dosage: 1 DF, UNKNOWN/D
     Route: 048
     Dates: start: 20130529, end: 20130529

REACTIONS (3)
  - Hypersensitivity [Recovering/Resolving]
  - Generalised erythema [Recovering/Resolving]
  - Pruritus generalised [Recovering/Resolving]
